FAERS Safety Report 5383104-9 (Version None)
Quarter: 2007Q2

REPORT INFORMATION
  Report Type: 
  Country: None (occurrence: None)
  Receive Date: 20070629
  Receipt Date: 20061031
  Transmission Date: 20071010
  Serious: Yes (Other)
  Sender: FDA-Public Use
  Company Number: US200611000090

PATIENT
  Age: 61 Year
  Sex: Female

DRUGS (2)
  1. HUMALOG MIX 75/25 [Suspect]
     Indication: DIABETES MELLITUS
     Dates: start: 20010101
  2. HUMALOG MIX 25L / 75 NPL PEN (HUMALOG MIX 25L / 75 NPL PEN) [Concomitant]
     Indication: DIABETES MELLITUS
     Dates: start: 20010101

REACTIONS (4)
  - CATARACT [None]
  - DYSPNOEA [None]
  - GLAUCOMA [None]
  - HEART RATE ABNORMAL [None]
